FAERS Safety Report 24834014 (Version 1)
Quarter: 2025Q1

REPORT INFORMATION
  Report Type: Spontaneous
  Country: US (occurrence: US)
  Receive Date: 20250112
  Receipt Date: 20250112
  Transmission Date: 20250409
  Serious: Yes (Other)
  Sender: JOHNSON AND JOHNSON
  Company Number: US-JNJFOC-20241285383

PATIENT

DRUGS (1)
  1. RISPERIDONE [Suspect]
     Active Substance: RISPERIDONE
     Indication: Product used for unknown indication
     Route: 048

REACTIONS (12)
  - Deafness [Unknown]
  - Blister [Unknown]
  - Vision blurred [Unknown]
  - Increased appetite [Unknown]
  - Migraine [Unknown]
  - Nail discolouration [Unknown]
  - Skin discolouration [Unknown]
  - Skin exfoliation [Unknown]
  - Abdominal pain upper [Unknown]
  - Arthropathy [Unknown]
  - Wound [Unknown]
  - Product quality issue [Unknown]
